FAERS Safety Report 24281407 (Version 1)
Quarter: 2024Q3

REPORT INFORMATION
  Report Type: Spontaneous
  Country: DE (occurrence: DE)
  Receive Date: 20240904
  Receipt Date: 20240904
  Transmission Date: 20241017
  Serious: Yes (Death, Hospitalization, Other)
  Sender: VELOXIS PHARMACEUTICALS
  Company Number: DE-EMA-DD-20240826-7482827-170511

PATIENT
  Age: 72 Year
  Sex: Male
  Weight: 57.8 kg

DRUGS (6)
  1. TACROLIMUS [Suspect]
     Active Substance: TACROLIMUS
     Indication: Immunosuppressant drug therapy
     Dosage: 1.5 MG, BID PER OS
     Route: 048
  2. TACROLIMUS [Suspect]
     Active Substance: TACROLIMUS
     Indication: Heart transplant
     Dosage: 2 MG, BID
     Route: 048
  3. MYCOPHENOLATE MOFETIL [Suspect]
     Active Substance: MYCOPHENOLATE MOFETIL
     Indication: Immunosuppressant drug therapy
     Dosage: 500 MG, BID PER OS
     Route: 048
  4. MYCOPHENOLATE MOFETIL [Suspect]
     Active Substance: MYCOPHENOLATE MOFETIL
     Indication: Heart transplant
     Dosage: 720 MG, BID
     Route: 048
  5. EVEROLIMUS [Suspect]
     Active Substance: EVEROLIMUS
     Indication: Immunosuppressant drug therapy
     Dosage: 1.5 MG, BID
     Route: 048
  6. EVEROLIMUS [Suspect]
     Active Substance: EVEROLIMUS
     Indication: Heart transplant

REACTIONS (9)
  - Multiple organ dysfunction syndrome [Fatal]
  - Pneumonitis [Unknown]
  - Renal impairment [Unknown]
  - Septic shock [Fatal]
  - Superinfection viral [Unknown]
  - Device related infection [Unknown]
  - Post transplant lymphoproliferative disorder [Unknown]
  - Acute respiratory distress syndrome [Unknown]
  - Off label use [Unknown]
